FAERS Safety Report 8491567-5 (Version None)
Quarter: 2012Q3

REPORT INFORMATION
  Report Type: 
  Country: None (occurrence: None)
  Receive Date: 20120706
  Receipt Date: 20120628
  Transmission Date: 20120928
  Serious: Yes (Other)
  Sender: FDA-Public Use
  Company Number: ES-JNJFOC-20120700753

PATIENT
  Sex: Male

DRUGS (5)
  1. STELARA [Suspect]
     Route: 058
     Dates: start: 20100427
  2. STELARA [Suspect]
     Route: 058
     Dates: start: 20110110, end: 20110630
  3. STELARA [Suspect]
     Indication: PSORIASIS
     Route: 058
     Dates: start: 20110803
  4. ADALIMUMAB [Suspect]
     Indication: PSORIASIS
     Route: 065
     Dates: start: 20091007, end: 20100325
  5. STELARA [Suspect]
     Route: 058
     Dates: start: 20110921, end: 20111103

REACTIONS (2)
  - DRUG INEFFECTIVE [None]
  - LARYNGEAL NEOPLASM [None]
